FAERS Safety Report 5820298-2 (Version None)
Quarter: 2008Q3

REPORT INFORMATION
  Report Type: 
  Country: None (occurrence: None)
  Receive Date: 20080724
  Receipt Date: 20070604
  Transmission Date: 20090109
  Serious: No
  Sender: FDA-Public Use
  Company Number: A0654093A

PATIENT
  Age: 64 Year
  Sex: Female

DRUGS (3)
  1. AVANDIA [Suspect]
     Dosage: 2MG TWICE PER DAY
     Route: 048
     Dates: start: 20060901
  2. LIPITOR [Concomitant]
  3. SINGULAIR [Concomitant]

REACTIONS (1)
  - PALPITATIONS [None]
